FAERS Safety Report 5896804-9 (Version None)
Quarter: 2008Q3

REPORT INFORMATION
  Report Type: 
  Country: None (occurrence: None)
  Receive Date: 20080924
  Receipt Date: 20070310
  Transmission Date: 20090109
  Serious: Yes (Hospitalization)
  Sender: FDA-Public Use
  Company Number: US-ASTRAZENECA-2007UW27187

PATIENT
  Sex: Female

DRUGS (12)
  1. SEROQUEL [Suspect]
     Route: 048
  2. PAXIL [Concomitant]
     Dates: start: 20001101, end: 20030401
  3. BUSPAR [Concomitant]
     Dates: start: 19980101
  4. DEXEDRINE [Concomitant]
     Dates: start: 19990501
  5. SERZONE [Concomitant]
     Dates: start: 19990501
  6. CELEXA [Concomitant]
     Dates: start: 20000101
  7. LAMICTAL [Concomitant]
     Dosage: 25 TO 100 MG QD
     Dates: start: 20011001, end: 20020101
  8. NEURONTIN [Concomitant]
     Dates: start: 20020101
  9. ALPRAZOLAM [Concomitant]
     Dosage: 0.5 MG 1-2/DAY AS NEEDED
     Dates: start: 20051201
  10. FLUVOXAMINE MALEATE [Concomitant]
     Dates: start: 20010301
  11. AMARYL [Concomitant]
  12. GLIMEPIRIDE [Concomitant]

REACTIONS (1)
  - PANCREATITIS [None]
